FAERS Safety Report 7326517-8 (Version None)
Quarter: 2011Q1

REPORT INFORMATION
  Report Type: 
  Country: None (occurrence: None)
  Receive Date: 20110302
  Receipt Date: 20110228
  Transmission Date: 20110831
  Serious: Yes (Hospitalization)
  Sender: FDA-Public Use
  Company Number: JP-ABBOTT-10P-087-0689450-00

PATIENT
  Sex: Male

DRUGS (20)
  1. MECOBALAMIN [Concomitant]
     Indication: NEUROPATHY PERIPHERAL
  2. FERROUS CITRATE [Concomitant]
     Indication: ANAEMIA
  3. BUCILLAMINE [Concomitant]
     Indication: RHEUMATOID ARTHRITIS
     Dosage: 200 MG DAILY
  4. FERROUS CITRATE [Concomitant]
     Indication: PROPHYLAXIS
     Dosage: 1-50 MG TABLET DAILY
  5. SALAZOSULFAPYRIDINE [Concomitant]
     Indication: RHEUMATOID ARTHRITIS
     Dosage: 1000 MG DAILY
  6. SODIUM ALGINATE [Concomitant]
     Indication: PROPHYLAXIS
     Dosage: 40 ML DAILY
  7. DICLOFENAC SODIUM [Concomitant]
     Indication: RHEUMATOID ARTHRITIS
     Dosage: 2-25 MG TABLETS DAILY
  8. HUMIRA [Suspect]
     Dates: start: 20100316, end: 20100608
  9. PREDNISOLONE [Concomitant]
     Indication: RHEUMATOID ARTHRITIS
     Dosage: 7.5 MG DAILY
     Route: 048
  10. AMBROXOL HYDROCHLORIDE [Concomitant]
     Indication: SPUTUM RETENTION
  11. ECABET SODIUM [Concomitant]
     Indication: PROPHYLAXIS
     Dosage: 4.5 GRAM DAILY
  12. MECOBALAMIN [Concomitant]
     Indication: PROPHYLAXIS
     Dosage: 3-500MCG DAILY
  13. NIFEDIPINE [Concomitant]
     Indication: HYPERTENSION
     Dosage: 40 MG DAILY
     Dates: start: 20100119
  14. ECABET SODIUM [Concomitant]
     Indication: GASTROINTESTINAL MUCOSAL DISORDER
  15. GLIMEPIRIDE [Concomitant]
     Indication: PRODUCT USED FOR UNKNOWN INDICATION
     Dosage: 0.5 MG DAILY
  16. NIFEDIPINE [Concomitant]
     Indication: PROPHYLAXIS
     Dosage: 20 MG DAILY
     Dates: start: 20091222, end: 20100118
  17. HUMIRA [Suspect]
     Indication: RHEUMATOID ARTHRITIS
     Route: 058
     Dates: start: 20090721, end: 20100202
  18. SODIUM ALGINATE [Concomitant]
     Indication: GASTROINTESTINAL MUCOSAL DISORDER
  19. BERAPROST SODIUM [Concomitant]
     Indication: PROPHYLAXIS
     Dosage: 3-20 MG TABLETS DAILY
  20. BERAPROST SODIUM [Concomitant]
     Indication: PULMONARY HYPERTENSION

REACTIONS (1)
  - TRANSIENT ISCHAEMIC ATTACK [None]
